FAERS Safety Report 11021294 (Version 2)
Quarter: 2015Q2

REPORT INFORMATION
  Report Type: Report from Study
  Country: US (occurrence: US)
  Receive Date: 20150413
  Receipt Date: 20150615
  Transmission Date: 20150821
  Serious: Yes (Hospitalization)
  Sender: FDA-Public Use
  Company Number: PHEH2014US011138

PATIENT
  Age: 51 Year
  Sex: Female
  Weight: 49.89 kg

DRUGS (3)
  1. TOBI PODHALER [Suspect]
     Active Substance: TOBRAMYCIN
     Indication: CHRONIC OBSTRUCTIVE PULMONARY DISEASE
  2. TOBI PODHALER [Suspect]
     Active Substance: TOBRAMYCIN
     Indication: CYSTIC FIBROSIS
     Dosage: 112 MG, BIDX 28 DAYS
     Route: 055
     Dates: start: 201405, end: 201406
  3. TOBI PODHALER [Suspect]
     Active Substance: TOBRAMYCIN
     Indication: ASTHMA
     Dosage: 128 OT, UNK
     Route: 055

REACTIONS (5)
  - Coma [Recovered/Resolved]
  - Respiratory muscle weakness [Recovered/Resolved]
  - Off label use [Unknown]
  - Emphysema [Recovering/Resolving]
  - Dyspnoea [Unknown]

NARRATIVE: CASE EVENT DATE: 201406
